FAERS Safety Report 11706222 (Version 3)
Quarter: 2018Q1

REPORT INFORMATION
  Report Type: Report from Study
  Country: None (occurrence: GB)
  Receive Date: 20151106
  Receipt Date: 20180301
  Transmission Date: 20180508
  Serious: Yes (Death, Other)
  Sender: FDA-Public Use
  Company Number: GB-ABBVIE-15K-167-1495828-00

PATIENT
  Age: 73 Year
  Sex: Female

DRUGS (1)
  1. HUMIRA [Suspect]
     Active Substance: ADALIMUMAB
     Indication: RHEUMATOID ARTHRITIS
     Route: 058
     Dates: start: 20050207, end: 20050624

REACTIONS (5)
  - Adult T-cell lymphoma/leukaemia [Fatal]
  - Neutropenic sepsis [Fatal]
  - Neutropenia [Fatal]
  - Pneumonia [Fatal]
  - Rheumatoid arthritis [Fatal]

NARRATIVE: CASE EVENT DATE: 20150121
